FAERS Safety Report 4441347-2 (Version None)
Quarter: 2004Q3

REPORT INFORMATION
  Report Type: 
  Country: None (occurrence: None)
  Receive Date: 20040728
  Receipt Date: 20040325
  Transmission Date: 20050211
  Serious: No
  Sender: FDA-Public Use
  Company Number: USA040363195

PATIENT
  Age: 8 Year
  Sex: Male
  Weight: 30 kg

DRUGS (2)
  1. STRATTERA [Suspect]
     Dosage: 40 MG/1 DAY
  2. RITALIN LA [Concomitant]

REACTIONS (2)
  - SLEEP DISORDER [None]
  - THERAPEUTIC RESPONSE DECREASED [None]
